FAERS Safety Report 8236718-2 (Version None)
Quarter: 2012Q1

REPORT INFORMATION
  Report Type: 
  Country: None (occurrence: None)
  Receive Date: 20120309
  Receipt Date: 20110511
  Transmission Date: 20120608
  Serious: Yes (Hospitalization)
  Sender: FDA-Public Use
  Company Number: PHHY2011US41560

PATIENT
  Age: 53 Year
  Sex: Female
  Weight: 79 kg

DRUGS (7)
  1. HYDROCODONE BITARTRATE + ACETAMINOPHEN [Concomitant]
  2. EXTAVIA [Suspect]
     Indication: MULTIPLE SCLEROSIS
     Dosage: , SUBCUTANEOUS
     Route: 058
  3. MITOXANTRONE [Concomitant]
  4. BUTALBITAL ACETAMINOPHEN AND CAFFEINE [Concomitant]
  5. CARBAMAZEPINE [Concomitant]
  6. COLESEVELAM HYDROCHLORIDE [Concomitant]
  7. CITALOPRAM HYDROBROMIDE [Concomitant]

REACTIONS (2)
  - MUSCULOSKELETAL STIFFNESS [None]
  - MUSCLE SPASTICITY [None]
